FAERS Safety Report 5314894-9 (Version None)
Quarter: 2007Q2

REPORT INFORMATION
  Report Type: 
  Country: None (occurrence: None)
  Receive Date: 20070502
  Receipt Date: 20070418
  Transmission Date: 20071010
  Serious: Yes (Hospitalization)
  Sender: FDA-Public Use
  Company Number: RU-SHR-RU-2005-017748

PATIENT
  Age: 22 Year
  Sex: Male

DRUGS (7)
  1. BETASERON [Suspect]
     Dosage: 8 OR 16 MIU, EVERY 2D
     Route: 058
     Dates: start: 20050523, end: 20051005
  2. SALBUTAMOL [Concomitant]
     Indication: ASTHMA
     Dosage: 100 MG, 2X/DAY
     Route: 055
     Dates: start: 20050601, end: 20050801
  3. SALBUTAMOL [Concomitant]
     Dosage: 400 MG, 4X/DAY
     Route: 055
     Dates: start: 19080805
  4. SALBUTAMOL [Concomitant]
     Dosage: 100 A?G, 2X/DAY
     Route: 055
     Dates: start: 19950101, end: 20050301
  5. PARACETAMOL [Concomitant]
     Dosage: 500 MG, EVERY 2D
     Dates: start: 20050728, end: 20051007
  6. NAPHAZOLINE HCL [Concomitant]
     Dosage: 2 GTT, 1X/DAY
     Route: 047
     Dates: start: 20050301, end: 20050801
  7. CITRAMON [Concomitant]
     Indication: HEADACHE
     Dosage: 1 TAB(S), AS REQ'D
     Route: 048
     Dates: start: 20050628, end: 20051001

REACTIONS (1)
  - ASTHMA [None]
